FAERS Safety Report 7441118-9 (Version None)
Quarter: 2011Q2

REPORT INFORMATION
  Report Type: 
  Country: None (occurrence: None)
  Receive Date: 20110427
  Receipt Date: 20110414
  Transmission Date: 20111010
  Serious: Yes (Hospitalization)
  Sender: FDA-Public Use
  Company Number: IR-MYLANLABS-2011S1007945

PATIENT
  Age: 80 Year
  Sex: Male

DRUGS (3)
  1. DILTIAZEM [Suspect]
     Route: 065
  2. ATENOLOL [Concomitant]
     Route: 065
  3. LOVASTATIN [Interacting]
     Route: 065

REACTIONS (3)
  - RENAL FAILURE ACUTE [None]
  - DRUG INTERACTION [None]
  - RHABDOMYOLYSIS [None]
